FAERS Safety Report 19309810 (Version 2)
Quarter: 2025Q1

REPORT INFORMATION
  Report Type: Spontaneous
  Country: DE (occurrence: DE)
  Receive Date: 20210526
  Receipt Date: 20250109
  Transmission Date: 20250409
  Serious: Yes (Other)
  Sender: MERCK
  Company Number: DE-009507513-2105DEU006049

PATIENT
  Age: 50 Year
  Sex: Male

DRUGS (2)
  1. TEMOZOLOMIDE [Suspect]
     Active Substance: TEMOZOLOMIDE
     Indication: Glioblastoma
     Dosage: 100-200 MILLIGRAM/SQ. METER PER DAY ON DAYS 2-6 OF THE 6-WEEK COURSE
  2. LOMUSTINE [Suspect]
     Active Substance: LOMUSTINE
     Indication: Glioblastoma
     Dosage: 100 MILLIGRAM/SQ. METER, ON DAY 1 (OF THE 6-WEEKS COURSE)

REACTIONS (1)
  - Tumour pseudoprogression [Unknown]
